FAERS Safety Report 11874633 (Version 2)
Quarter: 2016Q1

REPORT INFORMATION
  Report Type: Spontaneous
  Country: US (occurrence: US)
  Receive Date: 20151229
  Receipt Date: 20160122
  Transmission Date: 20160526
  Serious: Yes (Other)
  Sender: FDA-Public Use
  Company Number: US-PFIZER INC-2015458194

PATIENT
  Age: 12 Year
  Sex: Male
  Weight: 59 kg

DRUGS (1)
  1. CHAPSTICK CLASSIC ORIGINAL [Suspect]
     Active Substance: PETROLATUM
     Indication: LIP DRY
     Dosage: UNK
     Route: 061
     Dates: start: 20151216, end: 20151216

REACTIONS (4)
  - Paraesthesia oral [Unknown]
  - Lip swelling [Recovered/Resolved]
  - Swelling face [Recovered/Resolved]
  - Anaphylactic shock [Unknown]

NARRATIVE: CASE EVENT DATE: 20151217
